FAERS Safety Report 6717146-5 (Version None)
Quarter: 2010Q2

REPORT INFORMATION
  Report Type: 
  Country: None (occurrence: None)
  Receive Date: 20100504
  Receipt Date: 20100410
  Transmission Date: 20101027
  Serious: Yes (Other)
  Sender: FDA-Public Use
  Company Number: 2010-00003

PATIENT
  Sex: Female

DRUGS (1)
  1. NTG SKIN ID CREAM CLEANSER 2% SALICYLIC ACID [Suspect]
     Dosage: TOPICAL
     Route: 061

REACTIONS (3)
  - DRUG HYPERSENSITIVITY [None]
  - EYE SWELLING [None]
  - OCULAR HYPERAEMIA [None]
